FAERS Safety Report 20779678 (Version 5)
Quarter: 2024Q1

REPORT INFORMATION
  Report Type: Spontaneous
  Country: US (occurrence: US)
  Receive Date: 20220503
  Receipt Date: 20240215
  Transmission Date: 20240409
  Serious: Yes (Other)
  Sender: FDA-Public Use
  Company Number: US-PFIZER INC-2020157389

PATIENT
  Age: 81 Year
  Sex: Female
  Weight: 75.75 kg

DRUGS (4)
  1. PREMARIN [Suspect]
     Active Substance: ESTROGENS, CONJUGATED
     Indication: Gynaecological examination normal
     Dosage: 1.25 MG, 1X/DAY (1 TABLET ONCE A DAY 90 DAYS)
     Route: 048
  2. PREMARIN [Suspect]
     Active Substance: ESTROGENS, CONJUGATED
     Indication: Menopause
  3. LEVOTHYROXINE [Concomitant]
     Active Substance: LEVOTHYROXINE\LEVOTHYROXINE SODIUM
     Indication: Hypothyroidism
     Dosage: 0.100 MG, 1X/DAY
  4. ALBUTEROL SULFATE [Concomitant]
     Active Substance: ALBUTEROL SULFATE
     Dosage: 90 UG (2 PUFFS EVERY 4 HOURS)

REACTIONS (3)
  - Shoulder arthroplasty [Recovering/Resolving]
  - Dyspnoea [Unknown]
  - Product prescribing error [Unknown]
